FAERS Safety Report 14661387 (Version 7)
Quarter: 2018Q2

REPORT INFORMATION
  Report Type: Report from Study
  Country: US (occurrence: US)
  Receive Date: 20180320
  Receipt Date: 20180501
  Transmission Date: 20180711
  Serious: Yes (Life-Threatening, Hospitalization, Other)
  Sender: FDA-Public Use
  Company Number: US-GILEAD-2018-0325490

PATIENT
  Age: 19 Year
  Sex: Male
  Weight: 63.9 kg

DRUGS (17)
  1. LOTRISONE [Concomitant]
     Active Substance: BETAMETHASONE DIPROPIONATE\CLOTRIMAZOLE
  2. OXYGEN. [Concomitant]
     Active Substance: OXYGEN
  3. NYDRAZID [Concomitant]
     Active Substance: ISONIAZID
  4. POTASSIUM CHLORIDE. [Concomitant]
     Active Substance: POTASSIUM CHLORIDE
  5. TYLENOL [Concomitant]
     Active Substance: ACETAMINOPHEN
     Dosage: UNK
  6. ZYRTEC [Concomitant]
     Active Substance: CETIRIZINE HYDROCHLORIDE
  7. DULERA [Concomitant]
     Active Substance: FORMOTEROL FUMARATE DIHYDRATE\MOMETASONE FUROATE
  8. ALDACTAZIDE [Concomitant]
     Active Substance: HYDROCHLOROTHIAZIDE\SPIRONOLACTONE
  9. REMODULIN [Concomitant]
     Active Substance: TREPROSTINIL
  10. ADCIRCA [Concomitant]
     Active Substance: TADALAFIL
  11. FLONASE                            /00908302/ [Concomitant]
     Active Substance: MOMETASONE FUROATE
  12. IBUPROFEN. [Concomitant]
     Active Substance: IBUPROFEN
  13. AMBRISENTAN [Suspect]
     Active Substance: AMBRISENTAN
     Indication: PULMONARY ARTERIAL HYPERTENSION
     Dosage: 10 MG, QD
     Route: 048
     Dates: start: 20160517
  14. XOPENEX HFA [Concomitant]
     Active Substance: LEVALBUTEROL TARTRATE
  15. LASIX [Concomitant]
     Active Substance: FUROSEMIDE
  16. MELATONIN [Concomitant]
     Active Substance: MELATONIN
  17. DIGOX                              /00017701/ [Concomitant]

REACTIONS (9)
  - Device related infection [Recovered/Resolved]
  - Catheter site pain [Not Recovered/Not Resolved]
  - Nasopharyngitis [Not Recovered/Not Resolved]
  - Haemoptysis [Recovered/Resolved]
  - Pyrexia [Unknown]
  - Complication associated with device [Unknown]
  - Dyspnoea [Not Recovered/Not Resolved]
  - Catheter site pruritus [Not Recovered/Not Resolved]
  - Septic shock [Recovered/Resolved]

NARRATIVE: CASE EVENT DATE: 201803
